FAERS Safety Report 10637462 (Version 1)
Quarter: 2014Q4

REPORT INFORMATION
  Report Type: Spontaneous
  Country: US (occurrence: None)
  Receive Date: 20141205
  Receipt Date: 20141205
  Transmission Date: 20150529
  Serious: No
  Sender: FDA-Public Use
  Company Number: None

PATIENT
  Age: 65 Year
  Sex: Female
  Weight: 88 kg

DRUGS (3)
  1. SENIOR MULTI-VITAMIN [Concomitant]
  2. IBUPROFEN. [Concomitant]
     Active Substance: IBUPROFEN
  3. TERBINAFINE 250MG TABLETS [Suspect]
     Active Substance: TERBINAFINE
     Indication: ONYCHOMYCOSIS
     Route: 048
     Dates: start: 20140916, end: 20141025

REACTIONS (10)
  - Abdominal pain upper [None]
  - Pain [None]
  - Ageusia [None]
  - Weight decreased [None]
  - Headache [None]
  - Fatigue [None]
  - Chills [None]
  - Asthenia [None]
  - Ear congestion [None]
  - Feeling hot [None]

NARRATIVE: CASE EVENT DATE: 20141025
